FAERS Safety Report 10435126 (Version 1)
Quarter: 2014Q3

REPORT INFORMATION
  Report Type: Spontaneous
  Country: GB (occurrence: None)
  Receive Date: 20140707
  Receipt Date: 20140707
  Transmission Date: 20150326
  Serious: Yes (Disabling, Other)
  Sender: FDA-Public Use
  Company Number: AUR-APL-2014-06135

PATIENT
  Age: 27 Year
  Sex: Female

DRUGS (3)
  1. VENAXX (VENLAFAXINE HYDROCHLORIDE) [Concomitant]
  2. OLANZAPINE (OLANZAPINE) UNKNOWN [Suspect]
     Active Substance: OLANZAPINE
     Indication: SLEEP DISORDER
     Route: 048
     Dates: start: 20120611, end: 20120801
  3. QUETIAPINE (QUETIAPINE) [Concomitant]
     Active Substance: QUETIAPINE

REACTIONS (3)
  - Peripheral swelling [None]
  - Sleep disorder [None]
  - Off label use [None]

NARRATIVE: CASE EVENT DATE: 20120612
